FAERS Safety Report 8570378-6 (Version None)
Quarter: 2012Q3

REPORT INFORMATION
  Report Type: 
  Country: None (occurrence: None)
  Receive Date: 20120803
  Receipt Date: 20120725
  Transmission Date: 20120928
  Serious: Yes (Other)
  Sender: FDA-Public Use
  Company Number: US-ELI_LILLY_AND_COMPANY-US201207008045

PATIENT
  Sex: Female
  Weight: 79.365 kg

DRUGS (4)
  1. JANUVIA [Concomitant]
     Dosage: UNK, UNKNOWN
     Route: 048
     Dates: start: 20120705
  2. BYDUREON [Suspect]
     Indication: TYPE 2 DIABETES MELLITUS
     Dosage: 2 MG, WEEKLY (1/W)
     Route: 058
     Dates: start: 20120612, end: 20120703
  3. JANUVIA [Concomitant]
     Indication: TYPE 2 DIABETES MELLITUS
     Dosage: UNK, UNKNOWN
     Route: 048
     Dates: end: 20120611
  4. GLIMEPIRIDE [Concomitant]
     Indication: TYPE 2 DIABETES MELLITUS
     Dosage: 1 MG, QD
     Route: 048

REACTIONS (7)
  - CHILLS [None]
  - INJECTION SITE NODULE [None]
  - NAUSEA [None]
  - VOMITING [None]
  - PHARYNGEAL OEDEMA [None]
  - MALAISE [None]
  - ASTHENIA [None]
